FAERS Safety Report 7962344-6 (Version None)
Quarter: 2011Q4

REPORT INFORMATION
  Report Type: 
  Country: None (occurrence: None)
  Receive Date: 20111207
  Receipt Date: 20111201
  Transmission Date: 20120403
  Serious: Yes (Hospitalization)
  Sender: FDA-Public Use
  Company Number: US-MERCK-1104USA02219

PATIENT
  Age: 53 Year
  Sex: Female

DRUGS (2)
  1. FOSAMAX [Suspect]
     Route: 048
     Dates: start: 20071101, end: 20100801
  2. FOSAMAX [Suspect]
     Indication: OSTEOPENIA
     Route: 048
     Dates: start: 20010401, end: 20060301

REACTIONS (9)
  - FEMUR FRACTURE [None]
  - ANKLE FRACTURE [None]
  - GINGIVAL DISORDER [None]
  - URTICARIA [None]
  - FALL [None]
  - DENTAL CARIES [None]
  - TOOTH LOSS [None]
  - DEVICE FAILURE [None]
  - JAW DISORDER [None]
